FAERS Safety Report 5370558-7 (Version None)
Quarter: 2007Q2

REPORT INFORMATION
  Report Type: 
  Country: None (occurrence: None)
  Receive Date: 20070626
  Receipt Date: 20070625
  Transmission Date: 20071010
  Serious: Yes (Hospitalization)
  Sender: FDA-Public Use
  Company Number: DEWYE906825JUN07

PATIENT
  Age: 39 Year
  Sex: Female
  Weight: 75 kg

DRUGS (4)
  1. VENLAFAXINE HCL [Suspect]
     Dosage: UNKNOWN
     Route: 048
  2. COCAINE [Suspect]
     Dosage: UNKNOWN
     Route: 045
  3. METHADONE HCL [Suspect]
     Dosage: UNKNOWN
     Route: 048
  4. APONAL [Suspect]
     Dosage: UNKNOWN
     Route: 048

REACTIONS (3)
  - COMA [None]
  - INTENTIONAL OVERDOSE [None]
  - RESPIRATORY FAILURE [None]
